APPROVED DRUG PRODUCT: PROCYSBI
Active Ingredient: CYSTEAMINE BITARTRATE
Strength: EQ 75MG BASE/PACKET
Dosage Form/Route: GRANULE, DELAYED RELEASE;ORAL
Application: N213491 | Product #001
Applicant: HORIZON THERAPEUTICS USA INC
Approved: Feb 14, 2020 | RLD: Yes | RS: No | Type: RX

PATENTS:
Patent 8026284 | Expires: Sep 22, 2027
Patent 9198882 | Expires: Jan 26, 2027
Patent 9192590 | Expires: Jan 26, 2027
Patent 9925156 | Expires: Jan 26, 2027
Patent 10143665 | Expires: Aug 16, 2036
Patent 10328037 | Expires: Aug 16, 2036
Patent 9925157 | Expires: Jan 26, 2027
Patent 9925158 | Expires: Jan 26, 2027
Patent 10548859 | Expires: Aug 16, 2036
Patent 10905662 | Expires: Aug 16, 2036
Patent 9173851 | Expires: Jun 17, 2034
Patent 9233077 | Expires: Jun 17, 2034
Patent 10905662*PED | Expires: Feb 16, 2037
Patent 8026284*PED | Expires: Mar 22, 2028
Patent 9198882*PED | Expires: Jul 26, 2027
Patent 9192590*PED | Expires: Jul 26, 2027
Patent 9173851*PED | Expires: Dec 17, 2034
Patent 9925156*PED | Expires: Jul 26, 2027
Patent 10143665*PED | Expires: Feb 16, 2037
Patent 10328037*PED | Expires: Feb 16, 2037
Patent 9233077*PED | Expires: Dec 17, 2034
Patent 9925157*PED | Expires: Jul 26, 2027
Patent 9925158*PED | Expires: Jul 26, 2027
Patent 10548859*PED | Expires: Feb 16, 2037